FAERS Safety Report 4704492-X (Version None)
Quarter: 2005Q2

REPORT INFORMATION
  Report Type: 
  Country: None (occurrence: None)
  Receive Date: 20050628
  Receipt Date: 20050613
  Transmission Date: 20051028
  Serious: Yes (Hospitalization)
  Sender: FDA-Public Use
  Company Number: EWC050644509

PATIENT

DRUGS (2)
  1. ZYPREXA [Suspect]
  2. ALOPAM (OXAZEPAM) [Concomitant]

REACTIONS (8)
  - DRUG EXPOSURE DURING PREGNANCY [None]
  - HAEMOGLOBIN INCREASED [None]
  - NEONATAL DISORDER [None]
  - NEONATAL INFECTION [None]
  - NEONATAL PNEUMONIA [None]
  - POLYCYTHAEMIA [None]
  - RESPIRATORY RATE INCREASED [None]
  - TENSION [None]
